FAERS Safety Report 6247460-1 (Version None)
Quarter: 2009Q2

REPORT INFORMATION
  Report Type: 
  Country: None (occurrence: None)
  Receive Date: 20090626
  Receipt Date: 20090622
  Transmission Date: 20091009
  Serious: Yes (Death)
  Sender: FDA-Public Use
  Company Number: US-CELGENEUS-163-21880-09061599

PATIENT
  Sex: Female

DRUGS (4)
  1. REVLIMID [Suspect]
     Route: 048
     Dates: start: 20090601, end: 20090601
  2. REVLIMID [Suspect]
     Route: 048
     Dates: start: 20080201
  3. REVLIMID [Suspect]
     Route: 048
     Dates: start: 20080601
  4. REVLIMID [Suspect]
     Route: 048
     Dates: start: 20080901

REACTIONS (1)
  - NEOPLASM PROGRESSION [None]
